FAERS Safety Report 10589748 (Version 2)
Quarter: 2014Q4

REPORT INFORMATION
  Report Type: Spontaneous
  Country: US (occurrence: US)
  Receive Date: 20141118
  Receipt Date: 20141226
  Transmission Date: 20150529
  Serious: Yes (Other)
  Sender: FDA-Public Use
  Company Number: US-BAYER-2014-170152

PATIENT
  Age: 32 Year
  Sex: Female
  Weight: 99.77 kg

DRUGS (5)
  1. FOLIC ACID. [Concomitant]
     Active Substance: FOLIC ACID
     Route: 048
  2. HYOSCOMIN [Concomitant]
     Route: 048
  3. CENTRUM [Concomitant]
     Active Substance: VITAMINS
     Route: 048
  4. ASACOL [Concomitant]
     Active Substance: MESALAMINE
     Route: 048
  5. YAZ [Suspect]
     Active Substance: DROSPIRENONE\ETHINYL ESTRADIOL
     Route: 048

REACTIONS (1)
  - Deep vein thrombosis [None]

NARRATIVE: CASE EVENT DATE: 20071006
